FAERS Safety Report 19360164 (Version 1)
Quarter: 2021Q2

REPORT INFORMATION
  Report Type: Report from Study
  Country: None (occurrence: US)
  Receive Date: 20210602
  Receipt Date: 20210602
  Transmission Date: 20210717
  Serious: No
  Sender: FDA-Public Use
  Company Number: US-MDD US OPERATIONS-MDD202008-001691

PATIENT
  Age: 46 Year
  Sex: Male
  Weight: 127 kg

DRUGS (9)
  1. DILTIAZEM. [Concomitant]
     Active Substance: DILTIAZEM
     Dosage: NOT PROVIDED
  2. APOKYN [Suspect]
     Active Substance: APOMORPHINE HYDROCHLORIDE
     Route: 058
     Dates: start: 20200821
  3. APOKYN [Suspect]
     Active Substance: APOMORPHINE HYDROCHLORIDE
     Route: 058
     Dates: start: 20200821
  4. APOKYN [Suspect]
     Active Substance: APOMORPHINE HYDROCHLORIDE
     Indication: PARKINSON^S DISEASE
     Route: 058
     Dates: start: 20200821
  5. LOSARTAN. [Concomitant]
     Active Substance: LOSARTAN
     Dosage: NOT PROVIDED
  6. APOKYN [Suspect]
     Active Substance: APOMORPHINE HYDROCHLORIDE
     Route: 058
     Dates: start: 20200821
  7. FLECAINIDE [Concomitant]
     Active Substance: FLECAINIDE
     Dosage: NOT PROVIDED
  8. APOKYN [Suspect]
     Active Substance: APOMORPHINE HYDROCHLORIDE
     Route: 058
     Dates: start: 20200821
  9. ELIQUIS [Concomitant]
     Active Substance: APIXABAN
     Dosage: NOT PROVIDED

REACTIONS (9)
  - Nausea [Recovered/Resolved]
  - Injection site pruritus [Not Recovered/Not Resolved]
  - Injection site extravasation [Recovered/Resolved]
  - Therapy non-responder [Unknown]
  - Fatigue [Recovered/Resolved]
  - Parosmia [Unknown]
  - Injection site bruising [Not Recovered/Not Resolved]
  - Injection site nodule [Not Recovered/Not Resolved]
  - Spontaneous penile erection [Recovered/Resolved]

NARRATIVE: CASE EVENT DATE: 2020
